FAERS Safety Report 18336150 (Version 1)
Quarter: 2020Q4

REPORT INFORMATION
  Report Type: Spontaneous
  Country: US (occurrence: US)
  Receive Date: 20201001
  Receipt Date: 20201001
  Transmission Date: 20210113
  Serious: Yes (Death)
  Sender: FDA-Public Use
  Company Number: US-TAKEDA-2020TUS040859

PATIENT
  Age: 56 Year
  Sex: Female

DRUGS (1)
  1. ICLUSIG [Suspect]
     Active Substance: PONATINIB
     Indication: B-CELL TYPE ACUTE LEUKAEMIA
     Dosage: 45 MILLIGRAM
     Route: 065
     Dates: start: 202008

REACTIONS (1)
  - Multimorbidity [Fatal]

NARRATIVE: CASE EVENT DATE: 20200929
